FAERS Safety Report 7656668-X (Version None)
Quarter: 2011Q3

REPORT INFORMATION
  Report Type: 
  Country: None (occurrence: None)
  Receive Date: 20110804
  Receipt Date: 20110801
  Transmission Date: 20111222
  Serious: Yes (Hospitalization)
  Sender: FDA-Public Use
  Company Number: IT-MERCK-1108ITA00003

PATIENT
  Age: 80 Year
  Sex: Female

DRUGS (4)
  1. ASPIRIN [Suspect]
     Route: 048
     Dates: start: 20110218
  2. CLOPIDOGREL BISULFATE [Suspect]
     Indication: CORONARY ARTERIAL STENT INSERTION
     Route: 048
     Dates: start: 20101001
  3. ASPIRIN [Suspect]
     Indication: CORONARY ARTERIAL STENT INSERTION
     Route: 048
     Dates: start: 20101001, end: 20110207
  4. PRIMAXIN [Suspect]
     Indication: ESCHERICHIA SEPSIS
     Route: 042
     Dates: start: 20110128, end: 20110207

REACTIONS (2)
  - CLOSTRIDIUM DIFFICILE COLITIS [None]
  - DIARRHOEA HAEMORRHAGIC [None]
